FAERS Safety Report 5236701-5 (Version None)
Quarter: 2007Q1

REPORT INFORMATION
  Report Type: 
  Country: None (occurrence: None)
  Receive Date: 20070209
  Receipt Date: 20070126
  Transmission Date: 20070707
  Serious: Yes (Other)
  Sender: FDA-Public Use
  Company Number: 2006P1000598

PATIENT
  Age: 49 Year
  Sex: Female

DRUGS (1)
  1. NICARDIPINE HYDROCHLORIDE [Suspect]
     Indication: DRUG USE FOR UNKNOWN INDICATION
     Dates: end: 20050916

REACTIONS (3)
  - HAEMOLYSIS [None]
  - LEFT VENTRICLE OUTFLOW TRACT OBSTRUCTION [None]
  - MITRAL VALVE INCOMPETENCE [None]
